FAERS Safety Report 20826844 (Version 2)
Quarter: 2022Q2

REPORT INFORMATION
  Report Type: Other
  Country: FR (occurrence: None)
  Receive Date: 20220513
  Receipt Date: 20220527
  Transmission Date: 20220721
  Serious: Yes (Hospitalization)
  Sender: FDA-Public Use
  Company Number: FR-ROCHE-2640799

PATIENT
  Age: 64 Year
  Sex: Female
  Weight: 74 kg

DRUGS (16)
  1. ATEZOLIZUMAB [Suspect]
     Active Substance: ATEZOLIZUMAB
     Indication: Non-small cell lung cancer
     Dosage: SUBSEQUENTLY ON 11/OCT/2019, 31/OCT/2019, 22/NOV/2019, 13/DEC/2019,10/JAN/2020, 31/JAN/2020, 21/FEB/
     Route: 041
     Dates: start: 20190920
  2. LEVOTHYROXINE [Concomitant]
     Active Substance: LEVOTHYROXINE
     Indication: Prophylaxis
  3. CRESTOR [Concomitant]
     Active Substance: ROSUVASTATIN CALCIUM
     Indication: Dyslipidaemia
     Dates: start: 20200902
  4. RIVAROXABAN [Concomitant]
     Active Substance: RIVAROXABAN
     Indication: Hypertension
  5. INDAPAMIDE\PERINDOPRIL [Concomitant]
     Active Substance: INDAPAMIDE\PERINDOPRIL
     Indication: Hypertension
     Dates: start: 20200424
  6. AMLODIPINE BESYLATE [Concomitant]
     Active Substance: AMLODIPINE BESYLATE
     Indication: Hypertension
     Dates: start: 20200529
  7. ACETAMINOPHEN [Concomitant]
     Active Substance: ACETAMINOPHEN
     Indication: Musculoskeletal pain
     Dates: start: 20200722
  8. ACETAMINOPHEN [Concomitant]
     Active Substance: ACETAMINOPHEN
     Indication: Adverse event
  9. INNOHEP [Concomitant]
     Active Substance: TINZAPARIN SODIUM
     Indication: Adverse event
     Dates: start: 20210416, end: 2021
  10. CEFTRIAXONE [Concomitant]
     Active Substance: CEFTRIAXONE
     Indication: Adverse event
     Dates: start: 20211006, end: 20211007
  11. AMOXICILLIN [Concomitant]
     Active Substance: AMOXICILLIN
     Indication: Adverse event
     Dates: start: 20211008, end: 20211013
  12. CARBOPLATIN [Concomitant]
     Active Substance: CARBOPLATIN
     Dates: start: 20210603, end: 20211119
  13. PACLITAXEL [Concomitant]
     Active Substance: PACLITAXEL
     Dates: start: 20210603, end: 20211119
  14. BEVACIZUMAB [Concomitant]
     Active Substance: BEVACIZUMAB
     Indication: Neoplasm malignant
  15. CISPLATIN [Concomitant]
     Active Substance: CISPLATIN
     Indication: Neoplasm malignant
  16. PEMETREXED [Concomitant]
     Active Substance: PEMETREXED
     Indication: Neoplasm malignant

REACTIONS (1)
  - Hypopituitarism [Not Recovered/Not Resolved]

NARRATIVE: CASE EVENT DATE: 20200515
